FAERS Safety Report 22886522 (Version 3)
Quarter: 2024Q1

REPORT INFORMATION
  Report Type: Report from Study
  Country: FR (occurrence: FR)
  Receive Date: 20230831
  Receipt Date: 20240201
  Transmission Date: 20240410
  Serious: Yes (Hospitalization, Other)
  Sender: FDA-Public Use
  Company Number: FR-JNJFOC-20230856344

PATIENT
  Age: 60 Year
  Sex: Female
  Weight: 79 kg

DRUGS (9)
  1. SPRAVATO [Suspect]
     Active Substance: ESKETAMINE
     Indication: Depression
     Dates: start: 20230124, end: 20230131
  2. SPRAVATO [Suspect]
     Active Substance: ESKETAMINE
     Dates: start: 20230202, end: 20230216
  3. SPRAVATO [Suspect]
     Active Substance: ESKETAMINE
     Dates: start: 20230303, end: 20230718
  4. SPRAVATO [Suspect]
     Active Substance: ESKETAMINE
     Dates: start: 20230801, end: 20230801
  5. DULOXETINE [Concomitant]
     Active Substance: DULOXETINE
     Dates: start: 20220716, end: 20230224
  6. PAROXETINE [Concomitant]
     Active Substance: PAROXETINE
     Dates: start: 20230224
  7. TRIMEPRAZINE [Concomitant]
     Active Substance: TRIMEPRAZINE
     Indication: Insomnia
     Dates: start: 2020
  8. PRAZEPAM [Concomitant]
     Active Substance: PRAZEPAM
     Indication: Anxiety
     Dates: start: 2021
  9. PRAZEPAM [Concomitant]
     Active Substance: PRAZEPAM
     Dates: start: 20230801, end: 20230801

REACTIONS (3)
  - Suicidal ideation [Recovered/Resolved]
  - Panic attack [Recovered/Resolved]
  - Anxiety [Recovered/Resolved]

NARRATIVE: CASE EVENT DATE: 20230801
